FAERS Safety Report 24279834 (Version 2)
Quarter: 2024Q3

REPORT INFORMATION
  Report Type: Report from Study
  Country: US (occurrence: US)
  Receive Date: 20240904
  Receipt Date: 20240904
  Transmission Date: 20241017
  Serious: Yes (Other)
  Sender: BIOGEN
  Company Number: US-BIOGEN-2024BI01280612

PATIENT
  Sex: Male

DRUGS (1)
  1. TYSABRI [Suspect]
     Active Substance: NATALIZUMAB
     Indication: Maternal exposure timing unspecified
     Route: 050
     Dates: start: 20210525, end: 20220127

REACTIONS (3)
  - Deafness [Not Recovered/Not Resolved]
  - Benign enlargement of the subarachnoid spaces [Not Recovered/Not Resolved]
  - Foetal exposure during pregnancy [Recovered/Resolved]
